FAERS Safety Report 8121800-0 (Version None)
Quarter: 2012Q1

REPORT INFORMATION
  Report Type: 
  Country: None (occurrence: None)
  Receive Date: 20120207
  Receipt Date: 20120207
  Transmission Date: 20120608
  Serious: Yes (Death, Hospitalization)
  Sender: FDA-Public Use
  Company Number: None

PATIENT
  Sex: Male
  Weight: 88.1 kg

DRUGS (2)
  1. CISPLATIN [Suspect]
     Dosage: 124 MG
  2. ETOPOSIDE [Suspect]
     Dosage: 248 MG

REACTIONS (6)
  - SMALL CELL LUNG CANCER STAGE UNSPECIFIED [None]
  - SUPRAVENTRICULAR EXTRASYSTOLES [None]
  - LOBAR PNEUMONIA [None]
  - HYPERGLYCAEMIA [None]
  - RESPIRATORY DISTRESS [None]
  - BLOOD GLUCOSE FLUCTUATION [None]
